FAERS Safety Report 15136538 (Version 4)
Quarter: 2018Q4

REPORT INFORMATION
  Report Type: Spontaneous
  Country: CH (occurrence: CH)
  Receive Date: 20180712
  Receipt Date: 20180809
  Transmission Date: 20190204
  Serious: Yes (Other)
  Sender: FDA-Public Use
  Company Number: CH-PFIZER INC-2018086562

PATIENT
  Age: 41 Year
  Sex: Female

DRUGS (1)
  1. TEMESTA (LORAZEPAM) [Suspect]
     Active Substance: LORAZEPAM
     Indication: SLEEP DISORDER
     Dosage: 1-3 MG, DAILY
     Route: 048
     Dates: start: 20120119, end: 20131026

REACTIONS (18)
  - Drug ineffective [Unknown]
  - Fistula inflammation [Unknown]
  - Incorrect product administration duration [Recovered/Resolved]
  - Facial paralysis [Unknown]
  - Hyperhidrosis [Recovered/Resolved]
  - Feeling abnormal [Recovered/Resolved]
  - Depression [Unknown]
  - Vomiting [Recovered/Resolved]
  - Nervous system disorder [Unknown]
  - Iron deficiency [Recovered/Resolved]
  - Sepsis [Unknown]
  - Palpitations [Unknown]
  - Withdrawal syndrome [Unknown]
  - Drug dependence [Unknown]
  - Memory impairment [Unknown]
  - Restlessness [Unknown]
  - Feeling of despair [Unknown]
  - Vitamin B12 deficiency [Recovered/Resolved]

NARRATIVE: CASE EVENT DATE: 2013
